FAERS Safety Report 15797006 (Version 1)
Quarter: 2019Q1

REPORT INFORMATION
  Report Type: Spontaneous
  Country: US (occurrence: US)
  Receive Date: 20190108
  Receipt Date: 20190108
  Transmission Date: 20190417
  Serious: No
  Sender: FDA-Public Use
  Company Number: US-BAUSCH-BL-2018-010923

PATIENT
  Age: 71 Year
  Sex: Female

DRUGS (2)
  1. TETRABENAZINE. [Suspect]
     Active Substance: TETRABENAZINE
     Indication: CHOREA
     Dosage: MILLIGRAM
     Route: 048
     Dates: start: 201704, end: 2018
  2. TETRABENAZINE. [Suspect]
     Active Substance: TETRABENAZINE
     Indication: OFF LABEL USE

REACTIONS (3)
  - Fall [Unknown]
  - Treatment noncompliance [Not Recovered/Not Resolved]
  - Off label use [Recovered/Resolved]

NARRATIVE: CASE EVENT DATE: 201704
